FAERS Safety Report 16719477 (Version 3)
Quarter: 2019Q4

REPORT INFORMATION
  Report Type: Spontaneous
  Country: GB (occurrence: GB)
  Receive Date: 20190820
  Receipt Date: 20191002
  Transmission Date: 20200122
  Serious: Yes (Death, Other)
  Sender: FDA-Public Use
  Company Number: GB-TEVA-2019-GB-1095162

PATIENT
  Age: 7 Year
  Sex: Male

DRUGS (1)
  1. IVAX SALBUTAMOL [Suspect]
     Active Substance: ALBUTEROL
     Route: 065

REACTIONS (1)
  - Asthma [Fatal]
